FAERS Safety Report 17549961 (Version 13)
Quarter: 2023Q2

REPORT INFORMATION
  Report Type: Spontaneous
  Country: US (occurrence: US)
  Receive Date: 20200317
  Receipt Date: 20230627
  Transmission Date: 20230722
  Serious: Yes (Other)
  Sender: FDA-Public Use
  Company Number: US-PFIZER INC-2020115295

PATIENT
  Age: 77 Year
  Sex: Female

DRUGS (2)
  1. IBRANCE [Suspect]
     Active Substance: PALBOCICLIB
     Indication: Breast cancer female
     Dosage: 100 MG
     Dates: start: 20220210
  2. ZOMETA [Concomitant]
     Active Substance: ZOLEDRONIC ACID
     Dosage: UNK (EVERY THREE MONTH)

REACTIONS (17)
  - COVID-19 [Unknown]
  - Rhinorrhoea [Unknown]
  - Eye discharge [Unknown]
  - Fatigue [Unknown]
  - Loss of personal independence in daily activities [Unknown]
  - Upper-airway cough syndrome [Unknown]
  - Dry throat [Recovered/Resolved]
  - Feeling abnormal [Unknown]
  - Sleep disorder [Unknown]
  - Sinus disorder [Recovering/Resolving]
  - Headache [Recovering/Resolving]
  - Migraine [Recovering/Resolving]
  - Condition aggravated [Unknown]
  - Musculoskeletal discomfort [Recovering/Resolving]
  - Sensitivity to weather change [Unknown]
  - Neoplasm progression [Unknown]
  - Diarrhoea [Unknown]

NARRATIVE: CASE EVENT DATE: 20220101
